FAERS Safety Report 7316482-1 (Version None)
Quarter: 2011Q1

REPORT INFORMATION
  Report Type: 
  Country: None (occurrence: None)
  Receive Date: 20110226
  Receipt Date: 20110215
  Transmission Date: 20110831
  Serious: Yes (Other)
  Sender: FDA-Public Use
  Company Number: US-RB-021137-11

PATIENT
  Age: 73 Year
  Sex: Female

DRUGS (9)
  1. MUCINEX D [Suspect]
     Dosage: TWO TABLETS TAKEN PER DAY, 14 TABLETS TAKEN IN TOTAL UNTIL 09-FEB-2011
     Route: 048
  2. LEXAPRO [Concomitant]
     Dosage: DAILY
  3. TYLENOL [Concomitant]
     Indication: PAIN
  4. INSULIN [Concomitant]
     Dosage: TAKEN MORNING AND NIGHT
  5. DIPHENOXYLATE/ATROP [Concomitant]
     Indication: NAUSEA
     Dosage: AS NEEDED
  6. COREG [Concomitant]
     Indication: BLOOD PRESSURE
     Dosage: 1 A DAY
     Route: 048
  7. VITAMIN E [Concomitant]
  8. PROMETHAZINE [Concomitant]
     Indication: NAUSEA
     Dosage: AS REQUIRED
  9. TRAMADOL [Concomitant]
     Indication: PAIN
     Dosage: Q12 HOURS

REACTIONS (1)
  - HALLUCINATION [None]
